FAERS Safety Report 19808066 (Version 1)
Quarter: 2021Q3

REPORT INFORMATION
  Report Type: Spontaneous
  Country: US (occurrence: US)
  Receive Date: 20210903
  Receipt Date: 20210903
  Transmission Date: 20211014
  Serious: No
  Sender: FDA-Public Use
  Company Number: None

PATIENT
  Sex: Male

DRUGS (3)
  1. TETRABENAZINE ++ 12.5MG SUN PHARMACEUTICAL [Suspect]
     Active Substance: TETRABENAZINE
     Indication: PSORIATIC ARTHROPATHY
     Route: 048
     Dates: start: 202105, end: 202105
  2. TETRABENAZINE ++ 12.5MG SUN PHARMACEUTICAL [Suspect]
     Active Substance: TETRABENAZINE
     Indication: PSORIASIS
     Route: 048
     Dates: start: 202105, end: 202105
  3. TETRABENAZINE ++ 12.5MG SUN PHARMACEUTICAL [Suspect]
     Active Substance: TETRABENAZINE
     Indication: OROMANDIBULAR DYSTONIA
     Route: 048
     Dates: start: 202105, end: 202105

REACTIONS (4)
  - Arrhythmia [None]
  - Cardiac failure [None]
  - Therapy interrupted [None]
  - Cardiac disorder [None]
